FAERS Safety Report 5243287-8 (Version None)
Quarter: 2007Q1

REPORT INFORMATION
  Report Type: 
  Country: None (occurrence: None)
  Receive Date: 20070221
  Receipt Date: 20070214
  Transmission Date: 20070707
  Serious: Yes (Life-Threatening, Other)
  Sender: FDA-Public Use
  Company Number: JP-PFIZER INC-2007012576

PATIENT
  Age: 28 Year
  Sex: Female

DRUGS (1)
  1. ATARAX [Suspect]
     Route: 048

REACTIONS (3)
  - COMA [None]
  - OVERDOSE [None]
  - SUICIDE ATTEMPT [None]
